FAERS Safety Report 8511048-X (Version None)
Quarter: 2012Q2

REPORT INFORMATION
  Report Type: 
  Country: None (occurrence: None)
  Receive Date: 20120406
  Receipt Date: 20090901
  Transmission Date: 20120825
  Serious: Yes (Other)
  Sender: FDA-Public Use
  Company Number: PHEH2009US07769

PATIENT
  Age: 31 Year
  Sex: Male
  Weight: 68.5 kg

DRUGS (1)
  1. TASIGNA [Suspect]
     Indication: CHRONIC MYELOID LEUKAEMIA
     Dosage: 400 MG, BID, ORAL
     Route: 048
     Dates: start: 20090708

REACTIONS (4)
  - DIARRHOEA [None]
  - EPISTAXIS [None]
  - PLATELET COUNT DECREASED [None]
  - FATIGUE [None]
